FAERS Safety Report 9799815 (Version 2)
Quarter: 2014Q1

REPORT INFORMATION
  Report Type: Spontaneous
  Country: US (occurrence: US)
  Receive Date: 20140106
  Receipt Date: 20140106
  Transmission Date: 20141002
  Serious: No
  Sender: FDA-Public Use
  Company Number: US-GILEAD-2010-0031584

PATIENT
  Sex: Female
  Weight: 70.31 kg

DRUGS (6)
  1. LETAIRIS [Suspect]
     Indication: PULMONARY ARTERIAL HYPERTENSION
     Route: 048
     Dates: start: 20100405
  2. FOLIC ACID [Concomitant]
  3. HYDROXYUREA [Concomitant]
  4. SIMVASTATIN [Concomitant]
  5. OXYCODONE [Concomitant]
  6. AMINO ACIDS [Concomitant]

REACTIONS (1)
  - Liver function test abnormal [Unknown]
